FAERS Safety Report 14238367 (Version 1)
Quarter: 2017Q4

REPORT INFORMATION
  Report Type: Spontaneous
  Country: US (occurrence: None)
  Receive Date: 20171128
  Receipt Date: 20171128
  Transmission Date: 20180321
  Serious: No
  Sender: FDA-Public Use
  Company Number: None

PATIENT
  Age: 78 Year
  Sex: Female

DRUGS (1)
  1. AFINITOR [Suspect]
     Active Substance: EVEROLIMUS
     Indication: NEOPLASM MALIGNANT
     Route: 048
     Dates: start: 20170719, end: 20171128

REACTIONS (6)
  - Therapy cessation [None]
  - Dysgeusia [None]
  - Weight decreased [None]
  - Insomnia [None]
  - Decreased appetite [None]
  - Haemoglobin decreased [None]

NARRATIVE: CASE EVENT DATE: 20170731
